FAERS Safety Report 24754313 (Version 2)
Quarter: 2025Q3

REPORT INFORMATION
  Report Type: Spontaneous
  Country: US (occurrence: US)
  Receive Date: 20241219
  Receipt Date: 20250816
  Transmission Date: 20251020
  Serious: No
  Sender: ALEXION PHARMACEUTICALS
  Company Number: US-SANOFI-02342336

PATIENT
  Age: 6 Month
  Sex: Female
  Weight: 6.8 kg

DRUGS (1)
  1. BEYFORTUS [Suspect]
     Active Substance: NIRSEVIMAB-ALIP
     Indication: Antiviral prophylaxis
     Route: 065

REACTIONS (1)
  - Injection site induration [Recovered/Resolved]

NARRATIVE: CASE EVENT DATE: 20241213
